FAERS Safety Report 8201385-0 (Version None)
Quarter: 2012Q1

REPORT INFORMATION
  Report Type: 
  Country: None (occurrence: None)
  Receive Date: 20120312
  Receipt Date: 20120305
  Transmission Date: 20120608
  Serious: Yes (Hospitalization)
  Sender: FDA-Public Use
  Company Number: GB-GENZYME-CLOF-1002064

PATIENT

DRUGS (3)
  1. EVOLTRA [Suspect]
     Dosage: COURSE 2
     Route: 065
     Dates: start: 20110223, end: 20110223
  2. EVOLTRA [Suspect]
     Indication: ACUTE MYELOID LEUKAEMIA
     Dosage: COURSE 1
     Route: 065
     Dates: start: 20110121, end: 20110121
  3. EVOLTRA [Suspect]
     Dosage: COURSE 3
     Route: 065
     Dates: start: 20110426, end: 20110426

REACTIONS (4)
  - ATRIAL FIBRILLATION [None]
  - CARDIAC FAILURE [None]
  - NEUTROPENIC SEPSIS [None]
  - BRADYCARDIA [None]
